FAERS Safety Report 6988761-9 (Version None)
Quarter: 2010Q3

REPORT INFORMATION
  Report Type: 
  Country: None (occurrence: None)
  Receive Date: 20100916
  Receipt Date: 20100903
  Transmission Date: 20110219
  Serious: Yes (Hospitalization)
  Sender: FDA-Public Use
  Company Number: DE-MYLANLABS-2010S1016264

PATIENT
  Age: 58 Year
  Sex: Male
  Weight: 106 kg

DRUGS (13)
  1. SPIRONOLACTONE [Suspect]
     Indication: OEDEMA
     Route: 048
  2. ASPIRIN [Suspect]
     Indication: PROPHYLAXIS
     Route: 048
  3. VOLTAREN [Suspect]
     Indication: OSTEOARTHRITIS
     Route: 048
     Dates: start: 20080701, end: 20080819
  4. METFORMIN [Concomitant]
     Indication: TYPE 2 DIABETES MELLITUS
     Route: 048
  5. ALLOPURINOL [Concomitant]
     Indication: HYPERURICAEMIA
     Route: 048
  6. RASILEZ /01763601/ [Concomitant]
     Indication: HYPERTENSION
     Route: 048
     Dates: start: 20080101
  7. SYMBICORT [Concomitant]
     Indication: CHRONIC OBSTRUCTIVE PULMONARY DISEASE
     Route: 039
  8. CORDINATE [Concomitant]
     Indication: HYPERTENSION
     Route: 048
  9. BYETTA [Concomitant]
     Indication: TYPE 2 DIABETES MELLITUS
     Route: 058
     Dates: start: 20080201
  10. EZETIMIBE/SIMVASTATIN [Concomitant]
     Indication: HYPERCHOLESTEROLAEMIA
     Dosage: 1 DF = 10 MG EZETIMIB UND 40 MG SIMVASTATIN
     Route: 048
     Dates: start: 20070401
  11. SPIRIVA [Concomitant]
     Indication: CHRONIC OBSTRUCTIVE PULMONARY DISEASE
     Route: 039
  12. THEOPHYLLINE [Concomitant]
     Indication: CHRONIC OBSTRUCTIVE PULMONARY DISEASE
     Route: 048
  13. BIPRETERAX [Concomitant]
     Indication: HYPERTENSION
     Route: 048

REACTIONS (1)
  - GASTROINTESTINAL HAEMORRHAGE [None]
